FAERS Safety Report 17085792 (Version 1)
Quarter: 2019Q4

REPORT INFORMATION
  Report Type: Spontaneous
  Country: US (occurrence: US)
  Receive Date: 20191127
  Receipt Date: 20191127
  Transmission Date: 20200122
  Serious: Yes (Other)
  Sender: FDA-Public Use
  Company Number: None

PATIENT
  Age: 62 Year
  Sex: Female

DRUGS (5)
  1. AMLODIPINE BESYLATE. [Suspect]
     Active Substance: AMLODIPINE BESYLATE
     Indication: HYPERTENSION
     Route: 048
     Dates: start: 20191122, end: 20191125
  2. OMEPRAZOLE 20 [Concomitant]
     Dates: start: 20191108
  3. NYSTATIN ORAL SUSPENSION [Concomitant]
     Active Substance: NYSTATIN
     Dates: start: 20191122
  4. METRONIDAZOLE 500 [Concomitant]
     Dates: start: 20191112, end: 20191127
  5. CLARITHROMYCIN 500 [Concomitant]
     Dates: start: 20191112, end: 20191127

REACTIONS (1)
  - Loss of consciousness [None]

NARRATIVE: CASE EVENT DATE: 20191125
